FAERS Safety Report 7878508-6 (Version None)
Quarter: 2011Q4

REPORT INFORMATION
  Report Type: 
  Country: None (occurrence: None)
  Receive Date: 20111101
  Receipt Date: 20111021
  Transmission Date: 20120403
  Serious: Yes (Hospitalization, Other)
  Sender: FDA-Public Use
  Company Number: US-MYLANLABS-2011S1015463

PATIENT
  Age: 29 Year
  Sex: Male

DRUGS (2)
  1. AMNESTEEM [Suspect]
     Indication: CELLULITIS
     Route: 048
     Dates: start: 20101001, end: 20110701
  2. AMNESTEEM [Suspect]
     Indication: ACNE CYSTIC
     Route: 048
     Dates: start: 20101001, end: 20110701

REACTIONS (1)
  - PULMONARY EMBOLISM [None]
